FAERS Safety Report 14714546 (Version 1)
Quarter: 2018Q2

REPORT INFORMATION
  Report Type: Spontaneous
  Country: DE (occurrence: DE)
  Receive Date: 20180404
  Receipt Date: 20180404
  Transmission Date: 20180711
  Serious: Yes (Other)
  Sender: FDA-Public Use
  Company Number: DE-MYLANLABS-2018M1020349

PATIENT
  Age: 9 Year
  Sex: Male
  Weight: 32 kg

DRUGS (10)
  1. CISPLATIN. [Suspect]
     Active Substance: CISPLATIN
     Dosage: 40 MG/M2, UNK (INTERVALS OF 3 WEEKS FOR ATOTAL OF THREE CYCLES EACH)
  2. DOXORUBICINE                       /00330901/ [Concomitant]
     Active Substance: DOXORUBICIN
     Indication: NEUROBLASTOMA
     Dosage: UNK UNK, CYCLE
  3. VINDESINA [Concomitant]
     Active Substance: VINDESINE
     Indication: NEUROBLASTOMA
     Dosage: UNK UNK, CYCLE (INTERVALS OF 3 WEEKS FOR ATOTAL OF THREE CYCLES EACH)
  4. IFOSFAMIDE. [Suspect]
     Active Substance: IFOSFAMIDE
     Indication: NEUROBLASTOMA
     Dosage: UNK, CYCLIC (INTERVALS OF 3 WEEKS FOR A TOTAL OF THREE CYCLES EACH)
  5. ETOPOSIDE. [Suspect]
     Active Substance: ETOPOSIDE
     Indication: NEUROBLASTOMA
     Dosage: 100 MG/M2, CYCLE (INTERVALS OF 3 WEEKS FOR A TOTAL OF THREE CYCLES EACH)
  6. DOXORUBICIN [Concomitant]
     Active Substance: DOXORUBICIN
     Indication: NEUROBLASTOMA
     Dosage: UNK UNK, CYCLE
  7. CISPLATIN. [Suspect]
     Active Substance: CISPLATIN
     Indication: NEUROBLASTOMA
     Dosage: UNK UNK, CYCLE
  8. VINCRISTIN [Concomitant]
     Active Substance: VINCRISTINE
     Indication: NEUROBLASTOMA
     Dosage: UNK UNK, CYCLE
  9. DOXORUBICIN [Concomitant]
     Active Substance: DOXORUBICIN
     Dosage: UNK, CYCLIC (INTERVALS OF 3 WEEKS FOR A TOTAL OF THREE CYCLES EACH)
  10. DACARBAZIN [Concomitant]
     Active Substance: DACARBAZINE
     Indication: NEUROBLASTOMA
     Dosage: UNK UNK, CYCLE (INTERVALS OF 3 WEEKS FOR ATOTAL OF THREE CYCLES EACH)

REACTIONS (5)
  - Encephalopathy [Recovered/Resolved]
  - Product use in unapproved indication [Unknown]
  - Toxic encephalopathy [Recovered/Resolved]
  - Drug administered to patient of inappropriate age [Unknown]
  - Off label use [Unknown]
